FAERS Safety Report 10136186 (Version 1)
Quarter: 2014Q2

REPORT INFORMATION
  Report Type: Spontaneous
  Country: IT (occurrence: IT)
  Receive Date: 20140429
  Receipt Date: 20140429
  Transmission Date: 20141212
  Serious: Yes (Hospitalization)
  Sender: FDA-Public Use
  Company Number: IT-RANBAXY-2014RR-80747

PATIENT
  Age: 69 Year
  Sex: Female

DRUGS (1)
  1. LORAZEPAM [Suspect]
     Indication: INTENTIONAL SELF-INJURY
     Dosage: 20 MG, DAILY
     Route: 048
     Dates: start: 20131228, end: 20131228

REACTIONS (1)
  - Somnolence [Recovering/Resolving]
